FAERS Safety Report 12758024 (Version 1)
Quarter: 2016Q3

REPORT INFORMATION
  Report Type: Spontaneous
  Country: US (occurrence: US)
  Receive Date: 20160919
  Receipt Date: 20160919
  Transmission Date: 20161109
  Serious: Yes (Other)
  Sender: FDA-Public Use
  Company Number: None

PATIENT
  Age: 25 Year
  Sex: Female
  Weight: 71.73 kg

DRUGS (1)
  1. COPPER IUD [Suspect]
     Active Substance: COPPER\INTRAUTERINE DEVICE

REACTIONS (1)
  - Pain [None]

NARRATIVE: CASE EVENT DATE: 20160909
